FAERS Safety Report 5923963-1 (Version None)
Quarter: 2008Q4

REPORT INFORMATION
  Report Type: 
  Country: None (occurrence: None)
  Receive Date: 20081020
  Receipt Date: 20081008
  Transmission Date: 20090506
  Serious: Yes (Hospitalization, Disabling, Other)
  Sender: FDA-Public Use
  Company Number: PHHO2005JP01998

PATIENT
  Sex: Female
  Weight: 50 kg

DRUGS (9)
  1. GLEEVEC [Suspect]
     Indication: GASTROINTESTINAL STROMAL TUMOUR
     Dosage: 400 MG, QD
     Route: 048
     Dates: start: 20050121, end: 20050201
  2. GLEEVEC [Suspect]
     Dosage: 400 MG, QD
     Route: 048
     Dates: start: 20050308, end: 20070415
  3. GLEEVEC [Suspect]
     Dosage: 400 MG, QD
     Route: 048
     Dates: start: 20070703
  4. OMEPRAZOLE [Concomitant]
     Indication: GASTRITIS
     Dosage: 40 MG
     Route: 042
     Dates: start: 20050122, end: 20050124
  5. FAMOTIDINE [Concomitant]
     Indication: GASTRITIS
     Dosage: 40 MG
     Route: 042
     Dates: start: 20050120, end: 20050121
  6. FAMOTIDINE [Concomitant]
     Indication: GASTRIC ULCER
     Dosage: 40 MG
     Route: 048
     Dates: start: 20050223
  7. SUCRALFATE [Concomitant]
     Indication: GASTRIC ULCER
     Dosage: 3 MG
     Route: 048
     Dates: start: 20050223
  8. MAALOX [Concomitant]
     Indication: GASTRIC ULCER
     Dosage: 3.6 MG
     Route: 048
     Dates: start: 20050223
  9. SLOW-K [Concomitant]
     Indication: HYPOKALAEMIA
     Dosage: 600 MG
     Route: 048
     Dates: start: 20050620

REACTIONS (11)
  - ALOPECIA [None]
  - BLOOD CREATINE PHOSPHOKINASE INCREASED [None]
  - GASTRIC CANCER [None]
  - GASTRIC ULCER HAEMORRHAGE [None]
  - HAEMATEMESIS [None]
  - HAEMOGLOBIN DECREASED [None]
  - ILEUS [None]
  - NEPHRECTOMY [None]
  - OEDEMA [None]
  - RENAL CANCER [None]
  - SURGERY [None]
